FAERS Safety Report 18605762 (Version 2)
Quarter: 2021Q1

REPORT INFORMATION
  Report Type: Spontaneous
  Country: FR (occurrence: FR)
  Receive Date: 20201211
  Receipt Date: 20210205
  Transmission Date: 20210419
  Serious: Yes (Hospitalization)
  Sender: FDA-Public Use
  Company Number: FR-PFIZER INC-2020484309

PATIENT
  Age: 64 Year
  Sex: Female
  Weight: 85 kg

DRUGS (18)
  1. LEVOFLOXACIN. [Concomitant]
     Active Substance: LEVOFLOXACIN
     Dosage: 8 G, 1X/DAY
     Route: 048
     Dates: start: 20201021, end: 20201203
  2. IPERTEN [Concomitant]
     Active Substance: MANIDIPINE
     Dosage: 10 MG, DAILY
     Route: 048
  3. ELISOR [Concomitant]
     Active Substance: PRAVASTATIN SODIUM
     Dosage: 20 MG, DAILY
     Route: 048
  4. CEFEPIME [Concomitant]
     Active Substance: CEFEPIME HYDROCHLORIDE
     Indication: OSTEOMYELITIS
     Dosage: 500 MG BULK DOSE  THEN  250MG/24H
     Route: 051
     Dates: start: 20200923, end: 20201007
  5. LEVOFLOXACIN. [Concomitant]
     Active Substance: LEVOFLOXACIN
     Indication: OSTEOMYELITIS
     Dosage: 500MG BULK DOSE THEN 250MG/24H
     Route: 051
     Dates: start: 20200923, end: 20201007
  6. TAZOCILLINE [Suspect]
     Active Substance: PIPERACILLIN SODIUM\TAZOBACTAM SODIUM
     Indication: OSTEOMYELITIS
     Dosage: 4 G, 4X/DAY (EVERY 6 HOURS)
     Route: 042
     Dates: start: 20200922, end: 20200928
  7. AMOXICILLIN. [Concomitant]
     Active Substance: AMOXICILLIN
     Indication: OSTEOMYELITIS
     Dosage: 8 G, 1X/DAY
     Route: 048
     Dates: start: 20201021, end: 20201203
  8. CORTANCYL [Concomitant]
     Active Substance: PREDNISONE
     Dosage: 5 MG, DAILY
     Route: 048
  9. INSULIN [Concomitant]
     Active Substance: INSULIN NOS
     Dosage: UNK
     Route: 058
  10. METFORMIN [Concomitant]
     Active Substance: METFORMIN HYDROCHLORIDE
     Dosage: 2 G, DAILY
     Route: 048
  11. KARDEGIC [Concomitant]
     Active Substance: ASPIRIN DL-LYSINE
     Dosage: 75 MG, DAILY
     Route: 048
  12. LEVOFLOXACIN. [Concomitant]
     Active Substance: LEVOFLOXACIN
     Dosage: 750 MG, 1X/DAY, (500MG DOSE THEN  250MG/24H)
     Route: 048
     Dates: start: 20201007, end: 20201211
  13. DAPTOMYCINE [Suspect]
     Active Substance: DAPTOMYCIN
     Indication: OSTEOMYELITIS
     Dosage: 700 MG, DAILY
     Route: 041
     Dates: start: 20200922, end: 20200928
  14. VICTOZA [Concomitant]
     Active Substance: LIRAGLUTIDE
     Dosage: 1.2 MG, DAILY
     Route: 030
  15. CEFEPIME [Concomitant]
     Active Substance: CEFEPIME HYDROCHLORIDE
     Dosage: 6 G, 1X/DAY (500MG BULK DOSE  THEN  250MG/24H
     Route: 042
     Dates: start: 20201203, end: 20201210
  16. RITUXIMAB. [Concomitant]
     Active Substance: RITUXIMAB
     Indication: AUTOIMMUNE HAEMOLYTIC ANAEMIA
     Dosage: UNK
     Route: 065
  17. CEFEPIME [Concomitant]
     Active Substance: CEFEPIME HYDROCHLORIDE
     Dosage: 8 G, 1X/DAY
     Route: 048
     Dates: start: 20201021, end: 20201203
  18. ABASAGLAR [Concomitant]
     Active Substance: INSULIN GLARGINE
     Dosage: 1 DF, DAILY
     Route: 058

REACTIONS (2)
  - Off label use [Unknown]
  - Rhabdomyolysis [Recovered/Resolved]

NARRATIVE: CASE EVENT DATE: 20200922
